FAERS Safety Report 5228503-0 (Version None)
Quarter: 2007Q1

REPORT INFORMATION
  Report Type: 
  Country: None (occurrence: None)
  Receive Date: 20070205
  Receipt Date: 20070123
  Transmission Date: 20070707
  Serious: Yes (Hospitalization)
  Sender: FDA-Public Use
  Company Number: 479962

PATIENT
  Age: 46 Year
  Sex: Male
  Weight: 75 kg

DRUGS (5)
  1. COPEGUS [Suspect]
     Route: 048
     Dates: end: 20060801
  2. BACTRIM [Suspect]
     Indication: DRUG USE FOR UNKNOWN INDICATION
     Dosage: TWO DOSES DAILY.
     Route: 048
     Dates: end: 20060801
  3. PEGASYS [Suspect]
     Dosage: ONE DOSE WEEKLY.
     Route: 058
     Dates: end: 20060801
  4. COMBIVIR [Suspect]
     Indication: HIV INFECTION
     Route: 048
  5. VIRAMUNE [Suspect]
     Indication: HIV INFECTION
     Route: 048

REACTIONS (3)
  - ANAEMIA [None]
  - LEUKOPENIA [None]
  - NEUTROPENIA [None]
